FAERS Safety Report 25176319 (Version 2)
Quarter: 2025Q2

REPORT INFORMATION
  Report Type: Spontaneous
  Country: US (occurrence: US)
  Receive Date: 20250409
  Receipt Date: 20250416
  Transmission Date: 20250716
  Serious: Yes (Hospitalization, Other)
  Sender: AUROBINDO
  Company Number: US-MLMSERVICE-20250320-PI451341-00271-1

PATIENT
  Age: 57 Year
  Sex: Male

DRUGS (10)
  1. PREDNISONE [Suspect]
     Active Substance: PREDNISONE
     Indication: Immunosuppressant drug therapy
     Dosage: 7.5 MILLIGRAM, ONCE A DAY
     Route: 065
  2. PREDNISONE [Suspect]
     Active Substance: PREDNISONE
     Indication: Prophylaxis against transplant rejection
  3. FLUCONAZOLE [Suspect]
     Active Substance: FLUCONAZOLE
     Indication: Product used for unknown indication
     Route: 065
  4. MYCOPHENOLIC ACID [Suspect]
     Active Substance: MYCOPHENOLIC ACID
     Indication: Immunosuppressant drug therapy
     Route: 065
  5. MYCOPHENOLIC ACID [Suspect]
     Active Substance: MYCOPHENOLIC ACID
     Indication: Prophylaxis against transplant rejection
  6. TACROLIMUS [Suspect]
     Active Substance: TACROLIMUS
     Indication: Immunosuppressant drug therapy
     Route: 065
  7. TACROLIMUS [Suspect]
     Active Substance: TACROLIMUS
     Indication: Prophylaxis against transplant rejection
  8. SIROLIMUS [Suspect]
     Active Substance: SIROLIMUS
     Indication: Immunosuppressant drug therapy
     Route: 065
  9. TENOFOVIR [Concomitant]
     Active Substance: TENOFOVIR
     Indication: Chronic hepatitis B
     Route: 065
  10. ENTECAVIR [Concomitant]
     Active Substance: ENTECAVIR
     Indication: Chronic hepatitis B
     Route: 065

REACTIONS (5)
  - Acute kidney injury [Unknown]
  - Meningitis cryptococcal [Unknown]
  - Immunosuppressant drug level increased [Unknown]
  - Drug interaction [Unknown]
  - Drug ineffective [Unknown]
